FAERS Safety Report 5895943-6 (Version None)
Quarter: 2008Q3

REPORT INFORMATION
  Report Type: 
  Country: None (occurrence: None)
  Receive Date: 20080924
  Receipt Date: 20080911
  Transmission Date: 20090109
  Serious: No
  Sender: FDA-Public Use
  Company Number: US-B.I. PHARMACEUTICALS,INC./RIDGEFIELD-2008-BP-12021BP

PATIENT
  Age: 69 Year
  Sex: Male
  Weight: 95 kg

DRUGS (7)
  1. FLOMAX [Suspect]
     Indication: PROSTATIC DISORDER
  2. BACTRIM [Concomitant]
     Route: 048
  3. ACETYLSALICYLIC ACID SRT [Concomitant]
     Dosage: 81MG
  4. TOPROL-XL [Concomitant]
     Dosage: 2.5MG
  5. ZETIA [Concomitant]
     Dosage: 10MG
  6. LEXAPRO [Concomitant]
     Dosage: 20MG
  7. DIGOXIN [Concomitant]

REACTIONS (1)
  - DYSPNOEA [None]
